FAERS Safety Report 5300685-1 (Version None)
Quarter: 2007Q2

REPORT INFORMATION
  Report Type: 
  Country: None (occurrence: None)
  Receive Date: 20070418
  Receipt Date: 20070412
  Transmission Date: 20071010
  Serious: Yes (Hospitalization)
  Sender: FDA-Public Use
  Company Number: US-JNJFOC-20060905189

PATIENT
  Sex: Female
  Weight: 59.88 kg

DRUGS (1)
  1. ORTHO EVRA [Suspect]
     Indication: CONTRACEPTION
     Route: 062
     Dates: start: 20030301

REACTIONS (14)
  - ANEURYSM RUPTURED [None]
  - ATELECTASIS [None]
  - CARDIO-RESPIRATORY ARREST [None]
  - DRUG EXPOSURE DURING PREGNANCY [None]
  - HEPATIC ARTERY ANEURYSM [None]
  - HYPOTENSION [None]
  - INTRA-UTERINE DEATH [None]
  - PNEUMOTHORAX [None]
  - PREGNANCY WITH CONTRACEPTIVE DEVICE [None]
  - RETAINED PLACENTA OR MEMBRANES [None]
  - RETROPERITONEAL HAEMATOMA [None]
  - SPLENIC ARTERY ANEURYSM [None]
  - SPLENIC INFARCTION [None]
  - THROMBOPHLEBITIS SUPERFICIAL [None]
